FAERS Safety Report 23276254 (Version 1)
Quarter: 2023Q4

REPORT INFORMATION
  Report Type: Report from Study
  Country: US (occurrence: US)
  Receive Date: 20231208
  Receipt Date: 20231208
  Transmission Date: 20240109
  Serious: Yes (Hospitalization)
  Sender: FDA-Public Use
  Company Number: US-OYSTER POINT PHARMA, INC-US-OYS-23-001761

PATIENT
  Age: 41 Year
  Sex: Female

DRUGS (1)
  1. TYRVAYA [Suspect]
     Active Substance: VARENICLINE TARTRATE
     Indication: Product used for unknown indication
     Dosage: UNK, UNK
     Route: 045

REACTIONS (8)
  - Hospitalisation [Unknown]
  - Tremor [Unknown]
  - Anxiety [Unknown]
  - Dry mouth [Unknown]
  - Nightmare [Unknown]
  - Vomiting [Unknown]
  - Confusional state [Unknown]
  - Disturbance in attention [Unknown]

NARRATIVE: CASE EVENT DATE: 20231125
